FAERS Safety Report 20139197 (Version 8)
Quarter: 2022Q3

REPORT INFORMATION
  Report Type: Report from Study
  Country: GB (occurrence: None)
  Receive Date: 20211202
  Receipt Date: 20220719
  Transmission Date: 20221026
  Serious: Yes (Hospitalization)
  Sender: FDA-Public Use
  Company Number: GB-Eisai Medical Research-EC-2020-082332

PATIENT
  Age: 65 Year
  Sex: Male
  Weight: 79.1 kg

DRUGS (8)
  1. LENVATINIB [Suspect]
     Active Substance: LENVATINIB
     Indication: Hepatocellular carcinoma
     Route: 048
     Dates: start: 20191024, end: 20200920
  2. LENVATINIB [Suspect]
     Active Substance: LENVATINIB
     Dosage: STARTING AT 12 MILLIGRAM, FLUCTUATED DOSAGE
     Route: 048
     Dates: start: 20200921, end: 20211004
  3. PEMBROLIZUMAB [Suspect]
     Active Substance: PEMBROLIZUMAB
     Indication: Hepatocellular carcinoma
     Route: 041
     Dates: start: 20191024, end: 20200827
  4. PEMBROLIZUMAB [Suspect]
     Active Substance: PEMBROLIZUMAB
     Route: 041
     Dates: start: 20200921, end: 20210719
  5. AMLODIPINE [Concomitant]
     Active Substance: AMLODIPINE BESYLATE
     Dates: start: 20190926
  6. CHLORPHENIRAMINE MALEATE [Concomitant]
     Active Substance: CHLORPHENIRAMINE MALEATE
     Dates: start: 201902
  7. LEVOTHYROXINE SODIUM [Concomitant]
     Active Substance: LEVOTHYROXINE SODIUM
     Dates: start: 20200519
  8. BETNOVATE [Concomitant]
     Active Substance: BETAMETHASONE
     Dates: start: 20200826, end: 20201013

REACTIONS (2)
  - Skin ulcer [Recovered/Resolved]
  - Vasculitis [Recovered/Resolved]

NARRATIVE: CASE EVENT DATE: 20200913
